FAERS Safety Report 4663549-2 (Version None)
Quarter: 2005Q2

REPORT INFORMATION
  Report Type: 
  Country: None (occurrence: None)
  Receive Date: 20050517
  Receipt Date: 20050511
  Transmission Date: 20051028
  Serious: Yes (Hospitalization)
  Sender: FDA-Public Use
  Company Number: JP-GLAXOSMITHKLINE-B0381031A

PATIENT
  Age: 33 Year
  Sex: Female

DRUGS (2)
  1. ZEFIX [Suspect]
     Indication: HEPATITIS B
     Dosage: 100MG PER DAY
     Route: 048
     Dates: start: 20050425, end: 20050511
  2. URSO [Concomitant]
     Dosage: 2TAB THREE TIMES PER DAY
     Route: 048

REACTIONS (1)
  - HAEMOLYTIC ANAEMIA [None]
